FAERS Safety Report 9618400 (Version 1)
Quarter: 2013Q4

REPORT INFORMATION
  Report Type: Spontaneous
  Country: GB (occurrence: GB)
  Receive Date: 20131014
  Receipt Date: 20131014
  Transmission Date: 20140711
  Serious: Yes (Life-Threatening)
  Sender: FDA-Public Use
  Company Number: GB-RANBAXY-2013R1-74002

PATIENT
  Age: 67 Year
  Sex: 0

DRUGS (2)
  1. AMOXICILLIN/CLAVULANATE [Suspect]
     Indication: PROPHYLAXIS
     Dosage: UNK
     Route: 042
     Dates: start: 20130901, end: 20130901
  2. AMOXICILLIN/CLAVULANATE [Suspect]
     Indication: SURGERY

REACTIONS (1)
  - Anaphylactic reaction [Recovered/Resolved]
